FAERS Safety Report 5583804-1 (Version None)
Quarter: 2008Q1

REPORT INFORMATION
  Report Type: 
  Country: None (occurrence: None)
  Receive Date: 20080108
  Receipt Date: 20080104
  Transmission Date: 20080703
  Serious: Yes (Hospitalization, Other)
  Sender: FDA-Public Use
  Company Number: DE-JNJFOC-20071001551

PATIENT
  Age: 76 Year
  Sex: Female
  Weight: 92.9 kg

DRUGS (10)
  1. REMINYL [Suspect]
     Route: 048
  2. REMINYL [Suspect]
     Indication: DEMENTIA ALZHEIMER'S TYPE
     Route: 048
  3. MEMANTINE HCL [Interacting]
     Indication: DEMENTIA ALZHEIMER'S TYPE
     Route: 048
  4. HYDROCHLOROTHIAZIDE [Concomitant]
  5. ALLOPURINOL [Concomitant]
  6. XIPAMID [Concomitant]
  7. METOHEXAL [Concomitant]
  8. TRIAM [Concomitant]
  9. MAGNESIUM [Concomitant]
  10. LIQUIDEPUR [Concomitant]

REACTIONS (3)
  - DRUG INTERACTION [None]
  - SYNCOPE [None]
  - SYNCOPE VASOVAGAL [None]
